FAERS Safety Report 10580675 (Version 1)
Quarter: 2014Q4

REPORT INFORMATION
  Report Type: Spontaneous
  Country: US (occurrence: US)
  Receive Date: 20141113
  Receipt Date: 20141113
  Transmission Date: 20150529
  Serious: Yes (Hospitalization, Other)
  Sender: FDA-Public Use
  Company Number: US-RANBAXY-2014US-87814

PATIENT
  Sex: Male
  Weight: 1.48 kg

DRUGS (1)
  1. LISINOPRIL. [Suspect]
     Active Substance: LISINOPRIL
     Indication: RENOVASCULAR HYPERTENSION
     Dosage: UNK
     Route: 064

REACTIONS (10)
  - Renal dysplasia [Unknown]
  - Angiotensin converting enzyme inhibitor foetopathy [Unknown]
  - Low birth weight baby [Unknown]
  - Foetal exposure during pregnancy [Recovered/Resolved]
  - Premature baby [Unknown]
  - Hypotension [Not Recovered/Not Resolved]
  - Anuria [Recovering/Resolving]
  - Hypocalvaria [Recovering/Resolving]
  - Growth retardation [Unknown]
  - Malabsorption [Unknown]
